FAERS Safety Report 15456155 (Version 6)
Quarter: 2020Q4

REPORT INFORMATION
  Report Type: Spontaneous
  Country: US (occurrence: US)
  Receive Date: 20181002
  Receipt Date: 20201112
  Transmission Date: 20210113
  Serious: Yes (Other)
  Sender: FDA-Public Use
  Company Number: US-SA-2018SA270676

PATIENT

DRUGS (1)
  1. DUPIXENT [Suspect]
     Active Substance: DUPILUMAB
     Indication: DERMATITIS ATOPIC
     Dosage: 300 MG, QOW
     Route: 058
     Dates: start: 20180626

REACTIONS (14)
  - SARS-CoV-2 test positive [Recovered/Resolved]
  - Pyrexia [Recovered/Resolved]
  - Dry skin [Unknown]
  - Nasopharyngitis [Unknown]
  - Conjunctivitis [Unknown]
  - COVID-19 [Recovered/Resolved]
  - Headache [Recovered/Resolved]
  - Eczema [Unknown]
  - Vision blurred [Unknown]
  - Scab [Unknown]
  - Tenderness [Unknown]
  - Dermatitis [Unknown]
  - Therapeutic response decreased [Unknown]
  - Dry eye [Recovering/Resolving]

NARRATIVE: CASE EVENT DATE: 20201007
